FAERS Safety Report 7568358-2 (Version None)
Quarter: 2011Q2

REPORT INFORMATION
  Report Type: 
  Country: None (occurrence: None)
  Receive Date: 20110623
  Receipt Date: 20110616
  Transmission Date: 20111010
  Serious: Yes (Other)
  Sender: FDA-Public Use
  Company Number: A0932299A

PATIENT
  Age: 50 Year
  Sex: Female

DRUGS (1)
  1. PAROXETINE HCL [Suspect]
     Route: 065

REACTIONS (1)
  - PSYCHOTIC DISORDER [None]
